FAERS Safety Report 20040381 (Version 1)
Quarter: 2021Q4

REPORT INFORMATION
  Report Type: Spontaneous
  Country: US (occurrence: None)
  Receive Date: 20211105
  Receipt Date: 20211105
  Transmission Date: 20220303
  Serious: No
  Sender: FDA-Public Use
  Company Number: None

PATIENT
  Age: 72 Year
  Sex: Male

DRUGS (1)
  1. STELARA [Suspect]
     Active Substance: USTEKINUMAB
     Indication: Rheumatoid arthritis
     Dosage: OTHER QUANTITY : 90MG/1ML;?OTHER FREQUENCY : EVERY 8 WEEKS;?
     Dates: start: 20200318

REACTIONS (6)
  - Musculoskeletal stiffness [None]
  - Gait disturbance [None]
  - Hyperphagia [None]
  - COVID-19 [None]
  - Illness [None]
  - Therapy cessation [None]

NARRATIVE: CASE EVENT DATE: 20210824
